FAERS Safety Report 4781220-3 (Version None)
Quarter: 2005Q3

REPORT INFORMATION
  Report Type: 
  Country: None (occurrence: None)
  Receive Date: 20050928
  Receipt Date: 20050517
  Transmission Date: 20060218
  Serious: Yes (Hospitalization, Other)
  Sender: FDA-Public Use
  Company Number: 200514289US

PATIENT
  Sex: Male
  Weight: 88.45 kg

DRUGS (4)
  1. KETEK [Suspect]
     Indication: SINUSITIS
     Dosage: DOSE: UNK
     Route: 048
     Dates: start: 20050502, end: 20050506
  2. LIPITOR [Concomitant]
     Dosage: DOSE: UNK
  3. LOTREL [Concomitant]
     Dosage: DOSE: UNK
  4. CARDIOVASCULAR SYSTEM DRUGS [Concomitant]
     Dosage: DOSE: UNK

REACTIONS (3)
  - DEHYDRATION [None]
  - DYSGEUSIA [None]
  - ORAL INTAKE REDUCED [None]
